FAERS Safety Report 9520049 (Version 1)
Quarter: 2013Q1

REPORT INFORMATION
  Report Type: Spontaneous
  Country: US (occurrence: None)
  Receive Date: 20130305
  Receipt Date: 20130305
  Transmission Date: 20140127
  Serious: Yes (Disabling, Other)
  Sender: FDA-Public Use
  Company Number: 163-21880-12013151

PATIENT
  Age: 56 Year
  Sex: Female

DRUGS (2)
  1. REVLIMID [Suspect]
     Indication: LYMPHOMA
     Dosage: 20 MG, DAY 1-21, PO
     Route: 048
     Dates: start: 20110331, end: 20110910
  2. CELEBREX (CELECOXIB) [Concomitant]

REACTIONS (2)
  - Hypothyroidism [None]
  - Fatigue [None]
